FAERS Safety Report 7647132-2 (Version None)
Quarter: 2011Q3

REPORT INFORMATION
  Report Type: 
  Country: None (occurrence: None)
  Receive Date: 20110801
  Receipt Date: 20110102
  Transmission Date: 20111222
  Serious: Yes (Death, Hospitalization)
  Sender: FDA-Public Use
  Company Number: ES-AMGEN-QUU426323

PATIENT
  Age: 78 Year
  Sex: Female

DRUGS (6)
  1. ENBREL [Suspect]
     Indication: RHEUMATOID ARTHRITIS
     Dosage: 50 MG, QWK
     Route: 058
     Dates: start: 20090528, end: 20100324
  2. MANIDON [Concomitant]
     Dosage: 240 MG, QD
  3. METHOTREXATE [Interacting]
     Indication: RHEUMATOID ARTHRITIS
     Dosage: 17.5 MG, QWK
     Route: 048
     Dates: start: 20060208, end: 20100324
  4. DICLOFENAC SODIUM [Concomitant]
     Dosage: 150 MG, QD
     Route: 048
  5. DONEKA [Concomitant]
     Dosage: UNK UNK, UNK
  6. FOLIC ACID [Concomitant]
     Dosage: 5 MG, QWK
     Route: 048
     Dates: start: 20060208, end: 20100324

REACTIONS (5)
  - DRUG INTERACTION [None]
  - PNEUMONIA [None]
  - COLORECTAL CANCER METASTATIC [None]
  - ATRIAL FIBRILLATION [None]
  - HYPERTENSION [None]
